FAERS Safety Report 5207985-4 (Version None)
Quarter: 2007Q1

REPORT INFORMATION
  Report Type: 
  Country: None (occurrence: None)
  Receive Date: 20070110
  Receipt Date: 20061219
  Transmission Date: 20070707
  Serious: Yes (Hospitalization)
  Sender: FDA-Public Use
  Company Number: GB-GUERBET-20060010

PATIENT
  Age: 38 Year
  Sex: Male

DRUGS (1)
  1. DOTAREM: / MEGLUMINE GADOTERATE [Suspect]
     Indication: ARTERIOGRAM CAROTID
     Dosage: DOSAGE; UNSPECIFIED UNIT, UNSPECIFIED INTERVAL

REACTIONS (5)
  - INJECTION SITE PAIN [None]
  - PARAESTHESIA [None]
  - SNEEZING [None]
  - THROAT TIGHTNESS [None]
  - UNRESPONSIVE TO STIMULI [None]
